FAERS Safety Report 21045844 (Version 4)
Quarter: 2022Q4

REPORT INFORMATION
  Report Type: Spontaneous
  Country: JP (occurrence: JP)
  Receive Date: 20220706
  Receipt Date: 20221013
  Transmission Date: 20230113
  Serious: Yes (Hospitalization, Other)
  Sender: FDA-Public Use
  Company Number: JP-BRISTOL-MYERS SQUIBB COMPANY-2022-068972

PATIENT
  Age: 7 Decade
  Sex: Female

DRUGS (2)
  1. BREYANZI [Suspect]
     Active Substance: LISOCABTAGENE MARALEUCEL
     Indication: Diffuse large B-cell lymphoma
     Route: 065
     Dates: start: 20220517
  2. ELTROMBOPAG OLAMINE [Suspect]
     Active Substance: ELTROMBOPAG OLAMINE
     Indication: Product used for unknown indication
     Route: 065

REACTIONS (5)
  - Neutropenia [Not Recovered/Not Resolved]
  - Cytokine release syndrome [Recovered/Resolved]
  - Hypokalaemia [Unknown]
  - Malignant neoplasm progression [Unknown]
  - Ventricular fibrillation [Unknown]

NARRATIVE: CASE EVENT DATE: 20220517
